FAERS Safety Report 18549313 (Version 1)
Quarter: 2020Q4

REPORT INFORMATION
  Report Type: Spontaneous
  Country: DE (occurrence: DE)
  Receive Date: 20201126
  Receipt Date: 20201126
  Transmission Date: 20210114
  Serious: Yes (Other)
  Sender: FDA-Public Use
  Company Number: DE-SA-2020SA330294

PATIENT

DRUGS (6)
  1. CABLIVI [Suspect]
     Active Substance: CAPLACIZUMAB-YHDP
     Dosage: 10 MG, QD
     Route: 058
     Dates: start: 20201027
  2. CORTISONE [Concomitant]
     Active Substance: CORTISONE
     Dosage: UNK
     Route: 065
     Dates: start: 20191203
  3. PREDNISOLONE. [Concomitant]
     Active Substance: PREDNISOLONE
     Dosage: 100 MG, QD
     Route: 065
     Dates: start: 20201028
  4. PREDNISOLONE. [Concomitant]
     Active Substance: PREDNISOLONE
     Dosage: 100 MG, QD, DAYTIME
     Route: 065
     Dates: start: 20201103
  5. CABLIVI [Suspect]
     Active Substance: CAPLACIZUMAB-YHDP
     Dosage: 10 MG, QD
     Route: 058
     Dates: start: 20191205, end: 20191220
  6. RITUXIMAB. [Concomitant]
     Active Substance: RITUXIMAB
     Dosage: UNK, QW
     Route: 065
     Dates: start: 20191210

REACTIONS (10)
  - Blood lactate dehydrogenase abnormal [Unknown]
  - Haematoma [Unknown]
  - Unevaluable event [Unknown]
  - Petechiae [Unknown]
  - Rhinovirus infection [Unknown]
  - Thrombotic thrombocytopenic purpura [Unknown]
  - Condition aggravated [Unknown]
  - Platelet count decreased [Unknown]
  - COVID-19 [Unknown]
  - Off label use [Unknown]

NARRATIVE: CASE EVENT DATE: 2019
